FAERS Safety Report 7888092 (Version 2)
Quarter: 2016Q2

REPORT INFORMATION
  Report Type: Spontaneous
  Country: FR (occurrence: FR)
  Receive Date: 20110406
  Receipt Date: 20160428
  Transmission Date: 20160815
  Serious: Yes (Death, Hospitalization, Other)
  Sender: FDA-Public Use
  Company Number: FR-ELI_LILLY_AND_COMPANY-FR201103007521

PATIENT
  Age: 70 Year
  Sex: Male

DRUGS (1)
  1. GEMZAR [Suspect]
     Active Substance: GEMCITABINE HYDROCHLORIDE
     Dosage: UNK, UNKNOWN
     Route: 065
     Dates: start: 20101206, end: 20101206

REACTIONS (7)
  - Hypoalbuminaemia [Unknown]
  - Pleural effusion [Unknown]
  - Respiratory distress [Fatal]
  - Interstitial lung disease [Fatal]
  - Capillary leak syndrome [Fatal]
  - Pericardial effusion [Unknown]
  - Generalised oedema [Fatal]

NARRATIVE: CASE EVENT DATE: 20101213
